FAERS Safety Report 9685400 (Version 2)
Quarter: 2013Q4

REPORT INFORMATION
  Report Type: Spontaneous
  Country: US (occurrence: US)
  Receive Date: 20131113
  Receipt Date: 20131129
  Transmission Date: 20140711
  Serious: Yes (Other)
  Sender: FDA-Public Use
  Company Number: US-JNJFOC-20131102710

PATIENT
  Sex: Male
  Weight: 77.11 kg

DRUGS (10)
  1. XARELTO [Suspect]
     Indication: CEREBROVASCULAR ACCIDENT PROPHYLAXIS
     Route: 048
  2. XARELTO [Suspect]
     Indication: ATRIAL FIBRILLATION
     Route: 048
  3. SYNTHROID [Concomitant]
     Indication: THYROIDECTOMY
     Route: 048
     Dates: start: 2011
  4. OMEPRAZOLE [Concomitant]
     Indication: EROSIVE OESOPHAGITIS
     Route: 048
     Dates: start: 2012
  5. BUMEX [Concomitant]
     Indication: FLUID RETENTION
     Route: 048
  6. BENEFIBER [Concomitant]
     Indication: NUTRITIONAL SUPPLEMENTATION
     Dosage: 3 TEASPOONS
     Route: 048
  7. POTASSIUM [Concomitant]
     Indication: NUTRITIONAL SUPPLEMENTATION
     Dosage: STARTED ABOUT 3- 4 YEARS
     Route: 048
  8. LIVALO [Concomitant]
     Indication: BLOOD CHOLESTEROL
     Route: 048
     Dates: start: 2012
  9. ZOFRAN [Concomitant]
     Indication: NAUSEA
     Route: 048
     Dates: start: 2012
  10. LIDODERM [Concomitant]
     Indication: HERPES ZOSTER
     Dosage: ONCE- TWICE
     Route: 062
     Dates: start: 1995

REACTIONS (2)
  - Chondrocalcinosis pyrophosphate [Recovered/Resolved]
  - Inappropriate schedule of drug administration [Unknown]
